FAERS Safety Report 7388241-5 (Version None)
Quarter: 2011Q1

REPORT INFORMATION
  Report Type: 
  Country: None (occurrence: None)
  Receive Date: 20110329
  Receipt Date: 20110329
  Transmission Date: 20110831
  Serious: No
  Sender: FDA-Public Use
  Company Number: None

PATIENT
  Age: 34 Year
  Sex: Female
  Weight: 80.2867 kg

DRUGS (2)
  1. ESTRADIOL [Suspect]
     Indication: MENOPAUSE
     Dosage: 0.1 MG WEEKLY TRANSDERMAL .05MG WEEKLY TRANSDERMAL
     Route: 062
     Dates: start: 20110307
  2. ESTRADIOL [Suspect]
     Indication: MENOPAUSE
     Dosage: 0.1 MG WEEKLY TRANSDERMAL .05MG WEEKLY TRANSDERMAL
     Route: 062
     Dates: start: 20110314

REACTIONS (3)
  - HOT FLUSH [None]
  - HEADACHE [None]
  - PRODUCT SUBSTITUTION ISSUE [None]
